FAERS Safety Report 7936355-0 (Version None)
Quarter: 2011Q4

REPORT INFORMATION
  Report Type: 
  Country: None (occurrence: None)
  Receive Date: 20111123
  Receipt Date: 20111118
  Transmission Date: 20120403
  Serious: Yes (Life-Threatening, Hospitalization)
  Sender: FDA-Public Use
  Company Number: DK-PFIZER INC-2011211735

PATIENT
  Age: 70 Year
  Sex: Female
  Weight: 52 kg

DRUGS (6)
  1. ENALAPRIL MALEATE [Concomitant]
     Indication: HYPERTENSION
     Dosage: 5 MG, 1X/DAY
  2. SUTENT [Suspect]
     Indication: RENAL CANCER METASTATIC
     Dosage: 50 MG, 1X/DAY
     Route: 048
     Dates: start: 20110720, end: 20110814
  3. ENALAPRIL MALEATE [Concomitant]
     Dosage: 10 MG, 1X/DAY
     Dates: start: 20110804
  4. ENALAPRIL MALEATE [Concomitant]
     Dosage: 20 MG, 1X/DAY
     Dates: end: 20110814
  5. METFORMIN [Concomitant]
     Indication: DIABETES MELLITUS
     Dosage: 500 MG, 2X/DAY
     Route: 048
     Dates: end: 20110814
  6. FEMANOR [Concomitant]
     Indication: HORMONE REPLACEMENT THERAPY
     Dosage: STRENGHT: 1+2 MG
     Route: 048
     Dates: end: 20110814

REACTIONS (6)
  - CSF PROTEIN INCREASED [None]
  - ACUTE DISSEMINATED ENCEPHALOMYELITIS [None]
  - CSF CELL COUNT INCREASED [None]
  - MENINGITIS [None]
  - COMA [None]
  - ENCEPHALITIS [None]
